FAERS Safety Report 14984216 (Version 1)
Quarter: 2018Q2

REPORT INFORMATION
  Report Type: Report from Study
  Country: FR (occurrence: FR)
  Receive Date: 20180607
  Receipt Date: 20180607
  Transmission Date: 20180711
  Serious: Yes (Hospitalization, Other)
  Sender: FDA-Public Use
  Company Number: FR-JAZZ-2017-FR-015736

PATIENT

DRUGS (2)
  1. DEFITELIO [Suspect]
     Active Substance: DEFIBROTIDE SODIUM
     Indication: PROPHYLAXIS
     Dosage: 25 MG/KG, QD
     Route: 042
     Dates: start: 20131230, end: 20140122
  2. VINCRISTINE [Suspect]
     Active Substance: VINCRISTINE
     Indication: ACUTE LYMPHOCYTIC LEUKAEMIA REFRACTORY

REACTIONS (12)
  - Generalised tonic-clonic seizure [Unknown]
  - Dehydration [Recovering/Resolving]
  - Anxiety [Unknown]
  - Pain in jaw [Recovered/Resolved]
  - Ileus paralytic [Unknown]
  - Depression [Unknown]
  - Abdominal tenderness [Recovered/Resolved]
  - Arthralgia [Recovered/Resolved]
  - Decreased appetite [Recovering/Resolving]
  - Aplasia [Unknown]
  - Somnolence [Unknown]
  - Pain in jaw [Recovered/Resolved]

NARRATIVE: CASE EVENT DATE: 201404
